FAERS Safety Report 19596880 (Version 1)
Quarter: 2021Q3

REPORT INFORMATION
  Report Type: Spontaneous
  Country: CA (occurrence: CA)
  Receive Date: 20210722
  Receipt Date: 20210722
  Transmission Date: 20211014
  Serious: Yes (Other)
  Sender: FDA-Public Use
  Company Number: CA-ELI_LILLY_AND_COMPANY-CA202107004137

PATIENT
  Sex: Male

DRUGS (2)
  1. FLUOXETINE HYDROCHLORIDE 10MG [Suspect]
     Active Substance: FLUOXETINE HYDROCHLORIDE
     Indication: DEPRESSION
     Dosage: 10 MG, UNKNOWN
     Route: 065
  2. FLUOXETINE HYDROCHLORIDE 10MG [Suspect]
     Active Substance: FLUOXETINE HYDROCHLORIDE
     Indication: ANXIETY

REACTIONS (4)
  - Schizophrenia [Unknown]
  - Anxiety [Unknown]
  - Hallucination [Unknown]
  - Withdrawal syndrome [Unknown]
